FAERS Safety Report 10275443 (Version 2)
Quarter: 2014Q3

REPORT INFORMATION
  Report Type: Report from Study
  Country: CN (occurrence: CN)
  Receive Date: 20140703
  Receipt Date: 20140711
  Transmission Date: 20150326
  Serious: Yes (Death, Other)
  Sender: FDA-Public Use
  Company Number: CN-BAYER-2014-097110

PATIENT
  Age: 67 Year
  Sex: Male

DRUGS (1)
  1. NEXAVAR [Suspect]
     Active Substance: SORAFENIB
     Indication: HEPATOCELLULAR CARCINOMA
     Dosage: 400 MG, BID
     Dates: start: 20140611, end: 20140618

REACTIONS (5)
  - Death [Fatal]
  - Rash [None]
  - Anal ulcer [None]
  - Anorectal discomfort [None]
  - Anorectal swelling [None]

NARRATIVE: CASE EVENT DATE: 2014
